FAERS Safety Report 8060358-1 (Version None)
Quarter: 2012Q1

REPORT INFORMATION
  Report Type: 
  Country: None (occurrence: None)
  Receive Date: 20120119
  Receipt Date: 20120119
  Transmission Date: 20120608
  Serious: Yes (Hospitalization)
  Sender: FDA-Public Use
  Company Number: None

PATIENT
  Age: 72 Year
  Sex: Female
  Weight: 88.4 kg

DRUGS (7)
  1. FIORINAL W/CODEINE [Concomitant]
  2. COUMADIN [Suspect]
     Indication: DEEP VEIN THROMBOSIS
     Dosage: 7.5 MG Q M + F PO   CHRONIC W/ RECENT UNINTENTIONAL INCREASE
     Route: 048
  3. ATENOLOL [Concomitant]
  4. AVINZA [Concomitant]
  5. ALLEGRA [Concomitant]
  6. COUMADIN [Suspect]
     Indication: DEEP VEIN THROMBOSIS
     Dosage: 5 MG S S T W TH PO  CHRONIC W/ RECENT UNINTENTIONAL INCREASE
     Route: 048
  7. PAXIL [Concomitant]

REACTIONS (5)
  - GASTROINTESTINAL HAEMORRHAGE [None]
  - EPISTAXIS [None]
  - ACCIDENTAL OVERDOSE [None]
  - COAGULOPATHY [None]
  - TONGUE HAEMATOMA [None]
